FAERS Safety Report 19776756 (Version 1)
Quarter: 2021Q3

REPORT INFORMATION
  Report Type: Report from Study
  Country: US (occurrence: US)
  Receive Date: 20210901
  Receipt Date: 20210901
  Transmission Date: 20211014
  Serious: Yes (Other)
  Sender: FDA-Public Use
  Company Number: US-TEVA-2021-US-1901509

PATIENT
  Age: 30 Year
  Sex: Male

DRUGS (1)
  1. CLARAVIS [Suspect]
     Active Substance: ISOTRETINOIN
     Route: 065
     Dates: end: 2021

REACTIONS (1)
  - Bipolar disorder [Recovering/Resolving]

NARRATIVE: CASE EVENT DATE: 202104
